FAERS Safety Report 8782510 (Version 1)
Quarter: 2012Q4

REPORT INFORMATION
  Report Type: Report from Study
  Country: US (occurrence: US)
  Receive Date: 20120913
  Receipt Date: 20120913
  Transmission Date: 20130627
  Serious: No
  Sender: FDA-Public Use
  Company Number: US-VERTEX PHARMACEUTICAL INC.-AE-2012-009675

PATIENT
  Age: 63 None
  Sex: Female
  Weight: 101.82 kg

DRUGS (7)
  1. INCIVEK [Suspect]
     Indication: HEPATITIS C
     Route: 048
     Dates: start: 20120621
  2. RIBAVIRIN [Concomitant]
     Indication: HEPATITIS C
     Route: 048
     Dates: start: 20120621
  3. PEGASYS [Concomitant]
     Indication: HEPATITIS C
     Route: 058
     Dates: start: 20120621
  4. AMLODIPINE [Concomitant]
  5. DIOVAN HCT [Concomitant]
  6. METOPROLOL [Concomitant]
  7. KLOR-CON [Concomitant]

REACTIONS (2)
  - Headache [Unknown]
  - Anorectal discomfort [Not Recovered/Not Resolved]
